FAERS Safety Report 7426120-5 (Version None)
Quarter: 2011Q2

REPORT INFORMATION
  Report Type: 
  Country: None (occurrence: None)
  Receive Date: 20110420
  Receipt Date: 20110408
  Transmission Date: 20111010
  Serious: Yes (Hospitalization, Other)
  Sender: FDA-Public Use
  Company Number: PHFR2010GB00936

PATIENT
  Sex: Male

DRUGS (2)
  1. CLOZARIL [Suspect]
     Indication: SCHIZOPHRENIA
     Dosage: 400 MG, QD
     Route: 048
     Dates: start: 20051214
  2. CLOZARIL [Suspect]
     Dosage: 400 MG, QD
     Route: 048

REACTIONS (10)
  - WHITE BLOOD CELL COUNT DECREASED [None]
  - NEUTROPHIL COUNT DECREASED [None]
  - CHEST PAIN [None]
  - MALAISE [None]
  - HAEMOGLOBIN DECREASED [None]
  - INFECTION [None]
  - HODGKIN'S DISEASE [None]
  - PLATELET COUNT DECREASED [None]
  - LOWER RESPIRATORY TRACT INFECTION [None]
  - PYREXIA [None]
